FAERS Safety Report 23286246 (Version 2)
Quarter: 2024Q1

REPORT INFORMATION
  Report Type: Report from Study
  Country: US (occurrence: US)
  Receive Date: 20231212
  Receipt Date: 20240115
  Transmission Date: 20240409
  Serious: No
  Sender: FDA-Public Use
  Company Number: US-ACADIA PHARMACEUTICALS INC.-ACA-2023-PIM-005321

PATIENT
  Age: 83 Year
  Sex: Male

DRUGS (41)
  1. NUPLAZID [Suspect]
     Active Substance: PIMAVANSERIN TARTRATE
     Indication: Hallucination
     Dosage: 34 MILLIGRAM, QD
     Route: 048
     Dates: start: 20230324
  2. NUPLAZID [Suspect]
     Active Substance: PIMAVANSERIN TARTRATE
     Indication: Parkinson^s disease psychosis
  3. ASPIRIN [Concomitant]
     Active Substance: ASPIRIN
     Indication: Arteriosclerosis coronary artery
     Dosage: 81 MILLIGRAM, QD
     Route: 048
  4. BASAGLAR KWIKPEN [Concomitant]
     Active Substance: INSULIN GLARGINE
     Indication: Type 2 diabetes mellitus
     Dosage: 16 UNITS SUBCUTANEOUSLY DAILY
     Route: 058
  5. BREO ELLIPTA [Concomitant]
     Active Substance: FLUTICASONE FUROATE\VILANTEROL TRIFENATATE
     Indication: Asthma
     Dosage: INHALE 1 PUFF DAILY DAILY RINSE MOUTH WITH WATER AFTER USE.
  6. CARBIDOPA\LEVODOPA [Concomitant]
     Active Substance: CARBIDOPA\LEVODOPA
     Indication: Parkinson^s disease
     Dosage: 25--250 MG 1 TABLET BY MOUTH FOUR TIMES DAILY
     Route: 048
  7. CETIRIZINE HYDROCHLORIDE [Concomitant]
     Active Substance: CETIRIZINE HYDROCHLORIDE
     Indication: Rhinitis allergic
     Dosage: 10 MILLIGRAM, QD
     Route: 048
     Dates: end: 20230330
  8. CETIRIZINE HYDROCHLORIDE [Concomitant]
     Active Substance: CETIRIZINE HYDROCHLORIDE
     Dosage: 05 MILLIGRAM, QD
     Route: 048
  9. CIMETIDINE [Concomitant]
     Active Substance: CIMETIDINE
     Indication: Sexually inappropriate behaviour
     Dosage: 300 MILLIGRAM, QD
     Route: 048
  10. DIVALPROEX SODIUM [Concomitant]
     Active Substance: DIVALPROEX SODIUM
     Indication: Agitation
     Dosage: 125 MILLIGRAM, BID
     Route: 048
  11. DOCUSATE SOD [Concomitant]
     Indication: Constipation
     Dosage: 100 MILLIGRAM, QD
     Route: 048
     Dates: end: 20231027
  12. DOCUSATE SOD [Concomitant]
     Dosage: 100 MILLIGRAM, BID
     Route: 048
  13. DONEPEZIL [Concomitant]
     Active Substance: DONEPEZIL
     Indication: Dementia
     Dosage: 5 MILLIGRAM, QD
     Route: 048
  14. FINASTERIDE [Concomitant]
     Active Substance: FINASTERIDE
     Indication: Benign prostatic hyperplasia
     Dosage: 5 MILLIGRAM, QD
     Route: 048
  15. FLUTICASONE [Concomitant]
     Active Substance: FLUTICASONE
     Indication: Rhinitis allergic
     Dosage: USE 2 SPRAYS IN EACH NOSTRIL DAILY
  16. GLIPIZIDE [Concomitant]
     Active Substance: GLIPIZIDE
     Dosage: 10 MILLIGRAM, QD
     Route: 048
     Dates: end: 20230518
  17. HEMORRHOIDAL [PHENYLEPHRINE HYDROCHLORIDE] [Concomitant]
     Dosage: TAKE 1 SUPPOSITORY PER RECTUM BEDTIME FOR 7 DAYS
  18. HUMALOG KWIKPEN [Concomitant]
     Active Substance: INSULIN LISPRO
     Indication: Type 2 diabetes mellitus
     Dosage: INJECT 3 UNITS SUBCUTANEOUSLY EVERY MORNING
     Route: 058
  19. HUMALOG KWIKPEN [Concomitant]
     Active Substance: INSULIN LISPRO
     Dosage: INJECT 3 UNITS SUBCUTANEOUSLY DAILY WITH LUNCH.
  20. JANUVIA [Concomitant]
     Active Substance: SITAGLIPTIN PHOSPHATE
     Indication: Type 2 diabetes mellitus
     Dosage: 50 MILLIGRAM, QD
     Route: 048
  21. LOSARTAN POTASSIUM [Concomitant]
     Active Substance: LOSARTAN POTASSIUM
     Indication: Essential hypertension
     Dosage: 50 MILLIGRAM, QD
     Route: 048
  22. METFORMIN [Concomitant]
     Active Substance: METFORMIN HYDROCHLORIDE
     Indication: Type 2 diabetes mellitus
     Dosage: 500 MILLIGRAM, QD
     Route: 048
  23. METHIMAZOLE [Concomitant]
     Active Substance: METHIMAZOLE
     Indication: Hyperthyroidism
     Dosage: 2.5 MILLIGRAM, QD
     Route: 048
  24. PANTOPRAZOLE [Concomitant]
     Active Substance: PANTOPRAZOLE
     Indication: Gastrooesophageal reflux disease
     Dosage: 40 MILLIGRAM, QD
     Route: 048
  25. PEG 3350 [Concomitant]
     Active Substance: POLYETHYLENE GLYCOL 3350
     Indication: Constipation
     Dosage: 17 GRAM, QD, MIX 17 GRAMS (1 CAPFUL) IN A 4-8 OZ OF LIQUID EVERYDAY AT BEDTIME
     Route: 048
  26. SERTRALINE [Concomitant]
     Active Substance: SERTRALINE HYDROCHLORIDE
     Indication: Anxiety
     Dosage: 75 MILLIGRAM, QD
     Route: 048
  27. SPIRONOLACTONE AND HYDROCHLOROTHIAZIDE [Concomitant]
     Active Substance: HYDROCHLOROTHIAZIDE\SPIRONOLACTONE
     Indication: Hypertension
     Dosage: 25/25 TAKE 1 TABLET BY MOUHT DAILY
     Route: 048
  28. TAMSULOSIN [Concomitant]
     Active Substance: TAMSULOSIN
     Indication: Benign prostatic hyperplasia
     Dosage: 0.4, MILLIGRAM, QD
     Route: 048
  29. TRAZODONE [Concomitant]
     Active Substance: TRAZODONE HYDROCHLORIDE
     Indication: Insomnia
     Dosage: 50 MILLIGRAM, QD AT BEDTIME
     Route: 048
  30. ACETAMINOPHEN [Concomitant]
     Active Substance: ACETAMINOPHEN
     Indication: Body temperature increased
     Dosage: 325 MILLIGRAM PRN
     Route: 048
  31. ACETAMINOPHEN [Concomitant]
     Active Substance: ACETAMINOPHEN
     Indication: Pain
  32. ALCOHOL PREP PAD (ISOPROPYL ALCOHOL) [Concomitant]
     Active Substance: ISOPROPYL ALCOHOL
     Dosage: 70 PERCENT
  33. CALCIUM CARBONATE [Concomitant]
     Active Substance: CALCIUM CARBONATE
     Indication: Abdominal discomfort
     Dosage: TAKE 30 ML BY MOUTH EVERY5 HOURS AS NEEDED FOR GASTROINTESTINAL DISCOMFORT
     Route: 048
  34. DIPHENHIST [Concomitant]
     Active Substance: DIPHENHYDRAMINE HYDROCHLORIDE
     Indication: Urticaria
     Dosage: 25 MILLIGRAM EVERY 6 HOURS AS NEEDED
     Route: 048
     Dates: end: 20230330
  35. HEMORRHOIDAL [PHENYLEPHRINE HYDROCHLORIDE] [Concomitant]
     Indication: Haemorrhoids
     Dosage: UNK
  36. HEMORRHOIDAL [PHENYLEPHRINE HYDROCHLORIDE] [Concomitant]
     Dosage: FOUR TIMES DAILY AS NEEDED
     Route: 061
  37. LOPERAMIDE [Concomitant]
     Active Substance: LOPERAMIDE
     Indication: Diarrhoea
     Dosage: 2 MILLIGRAM AS NEEDED
     Route: 048
  38. LOPERAMIDE [Concomitant]
     Active Substance: LOPERAMIDE
     Dosage: TAKE 2 CAPSULE BY MOUTH AFTER FIRST LOOSE STOOL.
     Route: 048
  39. MILK OF MAGNESIA [Concomitant]
     Active Substance: MAGNESIUM HYDROXIDE
     Indication: Constipation
     Dosage: 30 MILLILITER, QD
     Route: 048
  40. MUCUS RELIEF ER [Concomitant]
     Active Substance: GUAIFENESIN
     Indication: Cough
     Dosage: 1200 MILLIGRAM, BID (2 TABS OF 600 MG TWICE DAILY)
     Route: 048
     Dates: end: 20230714
  41. LANCETAN [Concomitant]
     Dosage: UNK

REACTIONS (1)
  - Ill-defined disorder [Not Recovered/Not Resolved]

NARRATIVE: CASE EVENT DATE: 20231112
